FAERS Safety Report 15408511 (Version 1)
Quarter: 2018Q3

REPORT INFORMATION
  Report Type: Spontaneous
  Country: US (occurrence: US)
  Receive Date: 20180920
  Receipt Date: 20180920
  Transmission Date: 20181010
  Serious: No
  Sender: FDA-Public Use
  Company Number: PHEH2018US039028

PATIENT
  Sex: Female

DRUGS (1)
  1. CARBAMAZEPINE. [Suspect]
     Active Substance: CARBAMAZEPINE
     Indication: FOCAL DYSCOGNITIVE SEIZURES
     Dosage: 400 MG, TID (ONE IN THE MORNING AND TWO AT NIGHT)
     Route: 065

REACTIONS (2)
  - Discomfort [Unknown]
  - Inappropriate schedule of drug administration [Unknown]
